FAERS Safety Report 7259924-2 (Version None)
Quarter: 2011Q1

REPORT INFORMATION
  Report Type: 
  Country: None (occurrence: None)
  Receive Date: 20110130
  Receipt Date: 20100917
  Transmission Date: 20110831
  Serious: No
  Sender: FDA-Public Use
  Company Number: US-ABBOTT-10P-163-0671462-00

PATIENT
  Age: 39 Year
  Sex: Male

DRUGS (7)
  1. APOCOL [Concomitant]
     Indication: CROHN'S DISEASE
  2. POTASSIUM CITRATE [Concomitant]
     Indication: NEPHROLITHIASIS
  3. CA SUPPLEMENT [Concomitant]
     Indication: PRODUCT USED FOR UNKNOWN INDICATION
  4. THIOLA [Concomitant]
     Indication: NEPHROLITHIASIS
  5. VIT B6 [Concomitant]
     Indication: PRODUCT USED FOR UNKNOWN INDICATION
  6. HUMIRA [Suspect]
     Indication: CROHN'S DISEASE
     Dosage: PHYSICIAN HAD PATIENT INJECT 40 MG X 2 ON 16 SEP 2010 AND ALSO THE WEEK PRIOR.
     Dates: start: 20070101
  7. MULTI-VITAMIN [Concomitant]
     Indication: PRODUCT USED FOR UNKNOWN INDICATION

REACTIONS (4)
  - SKIN DISCOLOURATION [None]
  - PRURITUS [None]
  - PAIN IN EXTREMITY [None]
  - NODULE [None]
